FAERS Safety Report 19543988 (Version 1)
Quarter: 2021Q3

REPORT INFORMATION
  Report Type: Spontaneous
  Country: US (occurrence: US)
  Receive Date: 20210713
  Receipt Date: 20210713
  Transmission Date: 20211014
  Serious: No
  Sender: FDA-Public Use
  Company Number: US-FERRINGPH-2020FE08197

PATIENT
  Age: 15 Year
  Sex: Male

DRUGS (3)
  1. ZOMACTON [Suspect]
     Active Substance: SOMATROPIN
     Indication: PRODUCT USED FOR UNKNOWN INDICATION
     Dosage: UNK
     Route: 065
     Dates: start: 202008
  2. ZOMACTON [Suspect]
     Active Substance: SOMATROPIN
     Dosage: 31 UNITS FOR 12 WEEKS
     Route: 065
  3. ZOMACTON [Suspect]
     Active Substance: SOMATROPIN
     Dosage: 40 UNITS THE PAST 2 WEEKS
     Route: 065

REACTIONS (1)
  - Drug ineffective [Unknown]

NARRATIVE: CASE EVENT DATE: 202008
